FAERS Safety Report 14380233 (Version 1)
Quarter: 2018Q1

REPORT INFORMATION
  Report Type: Spontaneous
  Country: US (occurrence: US)
  Receive Date: 20180111
  Receipt Date: 20180111
  Transmission Date: 20180509
  Serious: Yes (Disabling)
  Sender: FDA-Public Use
  Company Number: None

PATIENT
  Sex: Female
  Weight: 61.2 kg

DRUGS (3)
  1. MAGNESIUM [Concomitant]
     Active Substance: MAGNESIUM
  2. MULTIVITAMIN [Concomitant]
     Active Substance: VITAMINS
  3. RETIN-A [Suspect]
     Active Substance: TRETINOIN
     Indication: SKIN WRINKLING
     Dosage: AT BEDTIME
     Route: 061
     Dates: start: 20171031, end: 20171112

REACTIONS (14)
  - Dizziness [None]
  - Neurotoxicity [None]
  - Thirst [None]
  - Photophobia [None]
  - Withdrawal syndrome [None]
  - Feeling abnormal [None]
  - Somnolence [None]
  - Confusional state [None]
  - Altered state of consciousness [None]
  - Disturbance in attention [None]
  - Anxiety [None]
  - Headache [None]
  - Head discomfort [None]
  - Fatigue [None]

NARRATIVE: CASE EVENT DATE: 20171112
